FAERS Safety Report 10915773 (Version 2)
Quarter: 2015Q4

REPORT INFORMATION
  Report Type: Spontaneous
  Country: GB (occurrence: GB)
  Receive Date: 20150316
  Receipt Date: 20151204
  Transmission Date: 20160304
  Serious: Yes (Other)
  Sender: FDA-Public Use
  Company Number: GB-TEVA-546302ACC

PATIENT
  Age: 47 Year
  Sex: Female

DRUGS (5)
  1. RISPERIDONE. [Concomitant]
     Active Substance: RISPERIDONE
     Dosage: LONG-TERM
     Dates: end: 201408
  2. OLANZAPINE. [Concomitant]
     Active Substance: OLANZAPINE
     Dates: start: 201408, end: 201410
  3. OLANZAPINE. [Concomitant]
     Active Substance: OLANZAPINE
     Dates: start: 201410
  4. VENLAFAXINE [Suspect]
     Active Substance: VENLAFAXINE HYDROCHLORIDE
     Indication: DEPRESSION
     Dosage: 150 MILLIGRAM DAILY;
     Dates: start: 201406
  5. VENLAFAXINE [Suspect]
     Active Substance: VENLAFAXINE HYDROCHLORIDE
     Indication: DEPRESSION
     Dosage: 75 MILLIGRAM DAILY;
     Dates: end: 201406

REACTIONS (11)
  - Tremor [Recovered/Resolved]
  - Seizure [Recovered/Resolved]
  - Emotional distress [Recovered/Resolved]
  - Contusion [Recovered/Resolved]
  - Chills [Recovered/Resolved]
  - Myoclonus [Recovered/Resolved]
  - Hypoxia [Recovered/Resolved]
  - Dyskinesia [Recovered/Resolved]
  - Skin abrasion [Recovered/Resolved]
  - Pyrexia [Recovered/Resolved]
  - Skin injury [Recovered/Resolved]

NARRATIVE: CASE EVENT DATE: 201501
